FAERS Safety Report 23860157 (Version 1)
Quarter: 2024Q2

REPORT INFORMATION
  Report Type: Spontaneous
  Country: BR (occurrence: BR)
  Receive Date: 20240515
  Receipt Date: 20240515
  Transmission Date: 20240715
  Serious: No
  Sender: FDA-Public Use
  Company Number: BR-WT-2024-AMR-047981

PATIENT
  Sex: Female

DRUGS (3)
  1. AVODART [Suspect]
     Active Substance: DUTASTERIDE
     Indication: Androgenetic alopecia
     Dosage: 0.5 MG, QD
     Route: 065
     Dates: start: 20240412
  2. AVODART [Suspect]
     Active Substance: DUTASTERIDE
     Indication: Diffuse alopecia
  3. MINOXIDIL [Concomitant]
     Active Substance: MINOXIDIL
     Dosage: 1 MG, QD
     Route: 048

REACTIONS (4)
  - Product prescribing issue [Unknown]
  - Product prescribing error [Unknown]
  - Product use issue [Unknown]
  - Product use in unapproved indication [Unknown]
